FAERS Safety Report 12825090 (Version 1)
Quarter: 2016Q4

REPORT INFORMATION
  Report Type: Report from Study
  Country: AU (occurrence: AU)
  Receive Date: 20161007
  Receipt Date: 20161007
  Transmission Date: 20170207
  Serious: Yes (Hospitalization)
  Sender: FDA-Public Use
  Company Number: AU-IPCA LABORATORIES LIMITED-IPC201609-000843

PATIENT

DRUGS (9)
  1. INDOMETHACIN. [Suspect]
     Active Substance: INDOMETHACIN
  2. AMOXICILLIN. [Suspect]
     Active Substance: AMOXICILLIN
  3. METFORMIN HYDROCHLORIDE. [Suspect]
     Active Substance: METFORMIN HYDROCHLORIDE
  4. ACETYLSALICYLIC ACID [Suspect]
     Active Substance: ASPIRIN
  5. CEFACLOR. [Suspect]
     Active Substance: CEFACLOR
  6. RAMIPRIL. [Suspect]
     Active Substance: RAMIPRIL
  7. AMOXICILLIN-CLAVULANIC ACID [Suspect]
     Active Substance: AMOXICILLIN\CLAVULANIC ACID
  8. GLIBENCLAMIDE [Suspect]
     Active Substance: GLYBURIDE
  9. ATORVASTATIN [Suspect]
     Active Substance: ATORVASTATIN

REACTIONS (1)
  - Drug-induced liver injury [Unknown]
